FAERS Safety Report 13831070 (Version 1)
Quarter: 2017Q3

REPORT INFORMATION
  Report Type: Other
  Country: GB (occurrence: GB)
  Receive Date: 20170803
  Receipt Date: 20170803
  Transmission Date: 20171127
  Serious: Yes (Death, Other)
  Sender: FDA-Public Use
  Company Number: GB-CELLTRION INC.-2017GB009995

PATIENT

DRUGS (3)
  1. COCODAMOL [Concomitant]
     Active Substance: ACETAMINOPHEN\CODEINE PHOSPHATE
  2. INFLIXIMAB [Suspect]
     Active Substance: INFLIXIMAB
     Indication: RHEUMATOID ARTHRITIS
     Dosage: UNK
     Route: 042
     Dates: start: 20170701, end: 20170701
  3. AZATHIOPRIN [Concomitant]
     Active Substance: AZATHIOPRINE

REACTIONS (3)
  - Pulmonary fibrosis [Not Recovered/Not Resolved]
  - Pneumonia [Fatal]
  - Emphysema [Fatal]
